FAERS Safety Report 18430515 (Version 3)
Quarter: 2021Q1

REPORT INFORMATION
  Report Type: Spontaneous
  Country: JP (occurrence: JP)
  Receive Date: 20201027
  Receipt Date: 20210205
  Transmission Date: 20210419
  Serious: Yes (Hospitalization, Disabling, Other)
  Sender: FDA-Public Use
  Company Number: NVSC2020JP286108

PATIENT
  Age: 50 Year
  Sex: Male
  Weight: 21 kg

DRUGS (18)
  1. RECLAST [Suspect]
     Active Substance: ZOLEDRONIC ACID
     Indication: PRODUCT USED FOR UNKNOWN INDICATION
     Dosage: 4 MG, Q12MO (5 MG/100 ML AT 4 MG, AT A RATE OF 60 ML/H) (UNDERDOSE)
     Route: 041
     Dates: start: 20201019, end: 20201019
  2. SOLITA?T2 [Concomitant]
     Indication: PRODUCT USED FOR UNKNOWN INDICATION
     Dosage: 8 G, UNKNOWN
     Route: 048
     Dates: start: 20201019
  3. SOLDEM 3A [Suspect]
     Active Substance: CARBOHYDRATES\POTASSIUM CHLORIDE\SODIUM CHLORIDE\SODIUM LACTATE
     Dosage: 200 ML (MAINTENANCE MEDIUM)
     Route: 065
     Dates: start: 20201026
  4. SODIUM CHLORIDE. [Concomitant]
     Active Substance: SODIUM CHLORIDE
     Indication: PRODUCT USED FOR UNKNOWN INDICATION
     Dosage: 30 G, UNKNOWN
     Route: 050
     Dates: start: 20160204
  5. DAIKENCHUTO [Concomitant]
     Active Substance: HERBALS
     Indication: PRODUCT USED FOR UNKNOWN INDICATION
     Dosage: UNK
     Route: 048
  6. MARZULENE?S [Concomitant]
     Active Substance: GLUTAMINE\SODIUM GUALENATE
     Indication: PRODUCT USED FOR UNKNOWN INDICATION
     Dosage: UNK
     Route: 048
  7. KAYTWO [Concomitant]
     Active Substance: MENATETRENONE
     Indication: PRODUCT USED FOR UNKNOWN INDICATION
     Dosage: 1 DF, UNKNOWN
     Route: 048
     Dates: start: 20190927
  8. SOLDEM 3A [Suspect]
     Active Substance: CARBOHYDRATES\POTASSIUM CHLORIDE\SODIUM CHLORIDE\SODIUM LACTATE
     Indication: PRODUCT USED FOR UNKNOWN INDICATION
     Dosage: 200 ML (MAINTENANCE MEDIUM) (AT A RATE OF 50 ML/H)
     Route: 065
     Dates: start: 20201021
  9. MAGMITT [Concomitant]
     Active Substance: MAGNESIUM OXIDE
     Indication: PRODUCT USED FOR UNKNOWN INDICATION
     Dosage: 660 MG, UNKNOWN
     Route: 050
  10. SOLDEM 1 [Suspect]
     Active Substance: DEXTROSE\SODIUM CHLORIDE\SODIUM LACTATE
     Indication: PRODUCT USED FOR UNKNOWN INDICATION
     Dosage: 500 ML (INITIATION MEDIUM) (AT A RATE OF 60 ML/H)
     Route: 065
     Dates: start: 20201021
  11. SOLDEM 3A [Suspect]
     Active Substance: CARBOHYDRATES\POTASSIUM CHLORIDE\SODIUM CHLORIDE\SODIUM LACTATE
     Dosage: (INITIATION MEDIUM) WAS ADMINISTERED AT 50 ML/H) UNK
     Route: 065
     Dates: start: 20201022
  12. E KEPPRA [Concomitant]
     Active Substance: LEVETIRACETAM
     Indication: PRODUCT USED FOR UNKNOWN INDICATION
     Dosage: 400 MG, UNKNOWN
     Route: 050
     Dates: start: 20180719
  13. SODIUM CHLORIDE. [Concomitant]
     Active Substance: SODIUM CHLORIDE
     Dosage: 20 ML, UNKNOWN
     Route: 065
     Dates: end: 20201026
  14. RIZABEN [Concomitant]
     Active Substance: TRANILAST
     Indication: PRODUCT USED FOR UNKNOWN INDICATION
     Dosage: 0.5 G, UNKNOWN
     Route: 048
     Dates: start: 20190317
  15. CALONAL [Concomitant]
     Active Substance: ACETAMINOPHEN
     Indication: PRODUCT USED FOR UNKNOWN INDICATION
     Dosage: UNK
     Route: 065
     Dates: start: 20200911
  16. VEEN?F [Suspect]
     Active Substance: CALCIUM CHLORIDE\MAGNESIUM CHLORIDE\POTASSIUM CHLORIDE\SODIUM ACETATE\SODIUM CHLORIDE
     Indication: PRODUCT USED FOR UNKNOWN INDICATION
     Dosage: 500 ML, UNKNOWN (AT A RATE OF 50 ML/H)
     Route: 065
     Dates: start: 20201021
  17. SOLDEM 3A [Suspect]
     Active Substance: CARBOHYDRATES\POTASSIUM CHLORIDE\SODIUM CHLORIDE\SODIUM LACTATE
     Dosage: (MAINTENANCE MEDIUM) WAS ADMINISTERED AT 500 ML (AT A RATE OF 20 ML/H)
     Route: 065
     Dates: start: 20201023, end: 20201024
  18. CALONAL [Concomitant]
     Active Substance: ACETAMINOPHEN
     Dosage: 4 G, UNKNOWN
     Route: 051
     Dates: start: 20201019, end: 20201020

REACTIONS (5)
  - Metabolic acidosis [Recovered/Resolved]
  - Hyperlactacidaemia [Unknown]
  - White blood cell count decreased [Not Recovered/Not Resolved]
  - Cyanosis [Recovered/Resolved]
  - Pyrexia [Recovered/Resolved]

NARRATIVE: CASE EVENT DATE: 20201020
